FAERS Safety Report 9420197 (Version 2)
Quarter: 2013Q3

REPORT INFORMATION
  Report Type: Spontaneous
  Country: US (occurrence: US)
  Receive Date: 20130725
  Receipt Date: 20130822
  Transmission Date: 20140515
  Serious: No
  Sender: FDA-Public Use
  Company Number: US-BAYER-2013-090320

PATIENT
  Age: 81 Year
  Sex: Male

DRUGS (1)
  1. ALEVE TABLET [Suspect]
     Dosage: UNK
     Dates: start: 20130719, end: 20130722

REACTIONS (2)
  - Dizziness [None]
  - Abdominal pain upper [None]
